FAERS Safety Report 7787506-2 (Version None)
Quarter: 2011Q3

REPORT INFORMATION
  Report Type: 
  Country: None (occurrence: None)
  Receive Date: 20110929
  Receipt Date: 20110920
  Transmission Date: 20111222
  Serious: Yes (Other)
  Sender: FDA-Public Use
  Company Number: US-ASTRAZENECA-2011SE56396

PATIENT
  Age: 76 Year
  Sex: Female
  Weight: 69.4 kg

DRUGS (11)
  1. ALLEGRA [Concomitant]
  2. ACETYLSALICYLIC ACID [Concomitant]
  3. CRESTOR [Suspect]
     Indication: BLOOD CHOLESTEROL INCREASED
     Route: 048
  4. TOVIAZ [Suspect]
     Indication: URINARY INCONTINENCE
     Route: 048
     Dates: start: 20110401, end: 20110501
  5. TOVIAZ [Suspect]
     Route: 048
     Dates: start: 20110701
  6. SYNTHROID [Concomitant]
     Indication: HYPOTHYROIDISM
  7. METFORMIN HCL [Concomitant]
     Indication: DIABETES MELLITUS
  8. ATENOLOL [Concomitant]
  9. GLIPIZIDE [Concomitant]
     Indication: DIABETES MELLITUS
  10. CALCIUM CARBONATE [Concomitant]
     Indication: BONE DENSITY ABNORMAL
     Dosage: TWO EXTRA STRENGTH
  11. ZETIA [Concomitant]
     Indication: BLOOD CHOLESTEROL INCREASED

REACTIONS (7)
  - BLOOD GLUCOSE ABNORMAL [None]
  - LIVER DISORDER [None]
  - HIGH DENSITY LIPOPROTEIN ABNORMAL [None]
  - BLOOD CHOLESTEROL ABNORMAL [None]
  - DRUG INEFFECTIVE [None]
  - BLADDER DISCOMFORT [None]
  - LOW DENSITY LIPOPROTEIN INCREASED [None]
